FAERS Safety Report 4851268-9 (Version None)
Quarter: 2005Q4

REPORT INFORMATION
  Report Type: 
  Country: None (occurrence: None)
  Receive Date: 20051208
  Receipt Date: 20051128
  Transmission Date: 20060501
  Serious: Yes (Hospitalization, Other)
  Sender: FDA-Public Use
  Company Number: TPA2005A01548

PATIENT
  Age: 60 Year
  Sex: Male

DRUGS (10)
  1. ACTOS [Suspect]
     Dosage: PER ORAL
     Route: 048
  2. BYETTA [Suspect]
     Dates: start: 20050816, end: 20050909
  3. GLUCOPHAGE [Suspect]
  4. COUMADIN [Suspect]
     Dosage: 5 MG, 4 DAYS PER WK + 7 MG 3 DAYS PER WK
  5. INSULIN HUMAN [Concomitant]
  6. ACETYLSALICYLIC ACID [Concomitant]
  7. PRINIVIL [Concomitant]
  8. LIPITOR [Concomitant]
  9. NEXIUM [Concomitant]
  10. ZESTRIL [Concomitant]

REACTIONS (15)
  - ANOREXIA [None]
  - BLOOD CREATINE INCREASED [None]
  - BLOOD UREA INCREASED [None]
  - CEREBROVASCULAR ACCIDENT [None]
  - CHILLS [None]
  - DEHYDRATION [None]
  - DIABETES MELLITUS INADEQUATE CONTROL [None]
  - DRUG TOXICITY [None]
  - ESCHERICHIA URINARY TRACT INFECTION [None]
  - FEELING ABNORMAL [None]
  - GASTRITIS [None]
  - GASTROINTESTINAL HAEMORRHAGE [None]
  - HAEMOGLOBIN DECREASED [None]
  - INTERNATIONAL NORMALISED RATIO INCREASED [None]
  - PROTHROMBIN TIME PROLONGED [None]
